FAERS Safety Report 4494206-3 (Version None)
Quarter: 2004Q4

REPORT INFORMATION
  Report Type: 
  Country: None (occurrence: None)
  Receive Date: 20041102
  Receipt Date: 20041020
  Transmission Date: 20050328
  Serious: Yes (Hospitalization)
  Sender: FDA-Public Use
  Company Number: 2004075591

PATIENT
  Age: 77 Year
  Sex: Female
  Weight: 50 kg

DRUGS (3)
  1. SULPERAZON (CEFOPERAZONE, SULBACTAM) [Suspect]
     Indication: INFECTION PROPHYLAXIS
     Dosage: 2 GRAM (1 GRAM , 2 IN 1 D), INTRAVENOUS
     Route: 042
     Dates: start: 20040916, end: 20040920
  2. ETODOLAC [Concomitant]
  3. REBAMIPIDE (REBAMIPIDE) [Concomitant]

REACTIONS (1)
  - CLOSTRIDIUM COLITIS [None]
